FAERS Safety Report 6266269-6 (Version None)
Quarter: 2009Q3

REPORT INFORMATION
  Report Type: 
  Country: None (occurrence: None)
  Receive Date: 20090713
  Receipt Date: 20090706
  Transmission Date: 20100115
  Serious: Yes (Hospitalization)
  Sender: FDA-Public Use
  Company Number: US-SANOFI-SYNTHELABO-F01200900559

PATIENT
  Sex: Female
  Weight: 60 kg

DRUGS (6)
  1. DECADRON [Concomitant]
     Indication: PREMEDICATION
     Route: 048
     Dates: start: 20090317
  2. KYTRIL [Concomitant]
     Indication: PROPHYLAXIS OF NAUSEA AND VOMITING
     Route: 042
     Dates: start: 20090318
  3. VICODIN [Concomitant]
     Indication: PAIN
     Dosage: 5/500 MG
     Route: 048
     Dates: start: 20090318
  4. FLUOROURACIL [Suspect]
     Route: 042
     Dates: start: 20090605, end: 20090605
  5. DOCETAXEL [Suspect]
     Route: 041
     Dates: start: 20090605, end: 20090605
  6. OXALIPLATIN [Suspect]
     Indication: GASTRIC CANCER
     Route: 041
     Dates: start: 20090605, end: 20090605

REACTIONS (1)
  - GASTROINTESTINAL PERFORATION [None]
